FAERS Safety Report 15604982 (Version 1)
Quarter: 2018Q4

REPORT INFORMATION
  Report Type: Report from Study
  Country: None (occurrence: IT)
  Receive Date: 20181112
  Receipt Date: 20181112
  Transmission Date: 20190205
  Serious: Yes (Death)
  Sender: FDA-Public Use
  Company Number: IT-ABBVIE-18S-083-2549490-00

PATIENT
  Sex: Female

DRUGS (1)
  1. DUODOPA [Suspect]
     Active Substance: CARBIDOPA\LEVODOPA
     Indication: PARKINSON^S DISEASE
     Dosage: MD 9+3, CR 2.5, ED 3.5
     Route: 050
     Dates: start: 20140401, end: 20181031

REACTIONS (3)
  - Asthenia [Fatal]
  - Pneumonia [Fatal]
  - Malnutrition [Unknown]
